FAERS Safety Report 22289926 (Version 2)
Quarter: 2023Q2

REPORT INFORMATION
  Report Type: Spontaneous
  Country: CA (occurrence: None)
  Receive Date: 20230505
  Receipt Date: 20230518
  Transmission Date: 20230721
  Serious: Yes (Hospitalization, Other)
  Sender: FDA-Public Use
  Company Number: 2023A102837

PATIENT
  Age: 57 Year
  Sex: Female

DRUGS (10)
  1. FULVESTRANT [Suspect]
     Active Substance: FULVESTRANT
     Indication: Chemotherapy
     Route: 030
  2. CAPECITABINE [Suspect]
     Active Substance: CAPECITABINE
     Indication: Breast cancer female
  3. ERIBULIN [Suspect]
     Active Substance: ERIBULIN
     Indication: Chemotherapy
  4. FEMARA [Suspect]
     Active Substance: LETROZOLE
     Indication: Breast cancer female
     Route: 048
  5. GEMCITABINE [Suspect]
     Active Substance: GEMCITABINE
     Indication: Chemotherapy
  6. PALBOCICLIB [Suspect]
     Active Substance: PALBOCICLIB
     Indication: Chemotherapy
     Route: 048
  7. TAMOXIFEN [Suspect]
     Active Substance: TAMOXIFEN
     Indication: Chemotherapy
     Route: 048
  8. TAXOL [Suspect]
     Active Substance: PACLITAXEL
     Indication: Chemotherapy
     Route: 042
  9. TAXOTERE [Suspect]
     Active Substance: DOCETAXEL
     Indication: Chemotherapy
     Route: 042
  10. VINORELBINE [Suspect]
     Active Substance: VINORELBINE TARTRATE
     Indication: Chemotherapy

REACTIONS (4)
  - Breast cancer [Unknown]
  - Drug intolerance [Unknown]
  - Malignant neoplasm progression [Unknown]
  - Neuropathy peripheral [Unknown]
